FAERS Safety Report 4451233-X (Version None)
Quarter: 2004Q3

REPORT INFORMATION
  Report Type: 
  Country: None (occurrence: None)
  Receive Date: 20040915
  Receipt Date: 20040915
  Transmission Date: 20050211
  Serious: Yes (Other)
  Sender: FDA-Public Use
  Company Number: None

PATIENT
  Age: 49 Year
  Sex: Female
  Weight: 146.0582 kg

DRUGS (14)
  1. LEVOTHYROXINE 0.125 MG QD [Suspect]
     Indication: HYPOTHYROIDISM
     Dosage: 0.125 QD ORAL
     Route: 048
     Dates: end: 20020101
  2. LEVOTHYROXINE 0.125 MG QD [Suspect]
     Indication: HYPOTHYROIDISM
     Dosage: 0.125 QD ORAL
     Route: 048
     Dates: start: 20030701
  3. ACTOS [Concomitant]
  4. GLUCOPHAGE [Concomitant]
  5. LANTUS [Concomitant]
  6. SINGULAIR [Concomitant]
  7. CLARITIN [Concomitant]
  8. PREVACID [Concomitant]
  9. LASIX [Concomitant]
  10. KCL TAB [Concomitant]
  11. ADVAIR DISKUS 100/50 [Concomitant]
  12. METHOTREXATE [Concomitant]
  13. FOLIC ACID [Concomitant]
  14. MERIDIA [Concomitant]

REACTIONS (1)
  - DRUG TOLERANCE DECREASED [None]
